FAERS Safety Report 6477705-4 (Version None)
Quarter: 2009Q4

REPORT INFORMATION
  Report Type: 
  Country: None (occurrence: None)
  Receive Date: 20091207
  Receipt Date: 20091125
  Transmission Date: 20100525
  Serious: Yes (Other)
  Sender: FDA-Public Use
  Company Number: US-PFIZER INC-2009303073

PATIENT
  Age: 54 Year

DRUGS (1)
  1. BEXTRA [Suspect]
     Dosage: UNK
     Route: 048
     Dates: start: 20030101

REACTIONS (1)
  - ISCHAEMIC STROKE [None]
